FAERS Safety Report 7347949-8 (Version None)
Quarter: 2011Q1

REPORT INFORMATION
  Report Type: 
  Country: None (occurrence: None)
  Receive Date: 20110311
  Receipt Date: 20110225
  Transmission Date: 20110831
  Serious: Yes (Hospitalization, Other)
  Sender: FDA-Public Use
  Company Number: US-BAYER-2011-022024

PATIENT
  Sex: Female
  Weight: 52.154 kg

DRUGS (10)
  1. SUBOXONE [Concomitant]
     Indication: DRUG WITHDRAWAL SYNDROME
  2. OXYCONTIN [Concomitant]
     Indication: ANALGESIC THERAPY
     Route: 048
  3. ADVIL [Concomitant]
     Dosage: 1-2 TABLETS
  4. METHYLPREDNISOLONE ACETATE [Concomitant]
     Dosage: UNK
     Dates: start: 20091112
  5. UNCODEABLE ^UNCLASSIFIABLE^ [Concomitant]
     Indication: BRONCHITIS
     Dosage: UNK
     Route: 048
     Dates: start: 20100601
  6. YAZ [Suspect]
     Indication: CONTRACEPTION
     Dosage: UNK
     Route: 048
     Dates: start: 20050101
  7. NSAID'S [Concomitant]
  8. ALCLOMETASONE [Concomitant]
     Dosage: UNK
     Dates: start: 20091112
  9. ANUCORT-HC [Concomitant]
     Dosage: UNK
     Dates: start: 20091112
  10. SUBUTEX [Concomitant]
     Indication: DRUG WITHDRAWAL SYNDROME

REACTIONS (4)
  - EMOTIONAL DISTRESS [None]
  - URINARY TRACT INFECTION [None]
  - NEPHROLITHIASIS [None]
  - CHOLELITHIASIS [None]
